FAERS Safety Report 21960019 (Version 2)
Quarter: 2023Q1

REPORT INFORMATION
  Report Type: Spontaneous
  Country: FR (occurrence: FR)
  Receive Date: 20230206
  Receipt Date: 20230214
  Transmission Date: 20230418
  Serious: Yes (Death)
  Sender: FDA-Public Use
  Company Number: FR-SUN PHARMACEUTICAL INDUSTRIES LTD-2023R1-377102

PATIENT
  Age: 29 Year
  Sex: Male

DRUGS (10)
  1. TESTOSTERONE PROPIONATE [Suspect]
     Active Substance: TESTOSTERONE PROPIONATE
     Indication: Product used for unknown indication
     Dosage: 4 NG/ML
     Route: 065
  2. TESTOSTERONE PROPIONATE [Suspect]
     Active Substance: TESTOSTERONE PROPIONATE
     Dosage: (930?691 PG/MG),
     Route: 065
  3. TESTOSTERONE PROPIONATE [Suspect]
     Active Substance: TESTOSTERONE PROPIONATE
     Dosage: (79 PG/MG TO 5 PG/MG),
     Route: 065
  4. NANDROLONE DECANOATE [Suspect]
     Active Substance: NANDROLONE DECANOATE
     Indication: Product used for unknown indication
     Dosage: 202?64 PG/MG
     Route: 065
  5. BOLDENONE [Suspect]
     Active Substance: BOLDENONE
     Indication: Product used for unknown indication
     Dosage: (26 NG/ML),
     Route: 065
  6. STANOZOLOL [Suspect]
     Active Substance: STANOZOLOL
     Dosage: (575?670 PG/MG)
     Route: 065
  7. TRENBOLONE [Suspect]
     Active Substance: TRENBOLONE
     Indication: Product used for unknown indication
     Dosage: (4 PG/MG?NOT DETECTED),
     Route: 065
  8. DROMOSTANOLONE [Suspect]
     Active Substance: DROMOSTANOLONE
     Indication: Product used for unknown indication
     Dosage: (26?5PG/MG)
     Route: 065
  9. DROMOSTANOLONE [Suspect]
     Active Substance: DROMOSTANOLONE
     Dosage: (15?4 PG/MG).
     Route: 065
  10. TESTOSTERONE DECANOATE\TESTOSTERONE ISOCAPROATE\TESTOSTERONE PHENYLPRO [Suspect]
     Active Substance: TESTOSTERONE DECANOATE\TESTOSTERONE ISOCAPROATE\TESTOSTERONE PHENYLPROPIONATE\TESTOSTERONE PROPIONAT
     Indication: Product used for unknown indication

REACTIONS (1)
  - Toxicity to various agents [Fatal]
